FAERS Safety Report 6582151-9 (Version None)
Quarter: 2010Q1

REPORT INFORMATION
  Report Type: 
  Country: None (occurrence: None)
  Receive Date: 20100212
  Receipt Date: 20100212
  Transmission Date: 20100710
  Serious: Yes (Hospitalization, Other)
  Sender: FDA-Public Use
  Company Number: None

PATIENT
  Sex: Female
  Weight: 104.2 kg

DRUGS (3)
  1. BUSULFEX [Suspect]
     Indication: ACUTE MYELOID LEUKAEMIA
     Dosage: 56MG 4 TIMES A DAY IV
     Route: 042
     Dates: start: 20091209, end: 20091212
  2. CYCLOPHOSPHAMIDE [Suspect]
     Indication: ACUTE MYELOID LEUKAEMIA
     Dosage: 4200MG ONCE A DAY IV
     Route: 042
     Dates: start: 20091213, end: 20091214
  3. ANTI-THYMOCYTE GLOBULIN NOS [Concomitant]

REACTIONS (2)
  - BONE MARROW FAILURE [None]
  - TRANSPLANT FAILURE [None]
